FAERS Safety Report 19443842 (Version 2)
Quarter: 2021Q3

REPORT INFORMATION
  Report Type: Report from Study
  Country: US (occurrence: US)
  Receive Date: 20210621
  Receipt Date: 20210907
  Transmission Date: 20211014
  Serious: Yes (Other)
  Sender: FDA-Public Use
  Company Number: US-GILEAD-2021-0529182

PATIENT
  Sex: Male

DRUGS (1)
  1. IDELALISIB [Suspect]
     Active Substance: IDELALISIB
     Indication: FOLLICULAR LYMPHOMA STAGE III
     Dosage: 150 MG, BID (ON HOLD FOR APPROXIMATELY 6 WEEKS)
     Route: 048
     Dates: start: 20170208

REACTIONS (3)
  - Cancer surgery [Unknown]
  - Chest pain [Unknown]
  - Oesophageal irritation [Unknown]
